FAERS Safety Report 6919435-8 (Version None)
Quarter: 2010Q3

REPORT INFORMATION
  Report Type: 
  Country: None (occurrence: None)
  Receive Date: 20100811
  Receipt Date: 20100804
  Transmission Date: 20110219
  Serious: Yes (Other)
  Sender: FDA-Public Use
  Company Number: B0635298B

PATIENT
  Sex: Male
  Weight: 2.8 kg

DRUGS (11)
  1. RELENZA [Suspect]
     Indication: INFLUENZA
     Dosage: 20MG PER DAY
     Route: 055
     Dates: start: 20091213, end: 20091217
  2. DUVADILAN [Concomitant]
     Indication: ABORTION THREATENED
     Dosage: 3IUAX PER DAY
     Route: 048
     Dates: start: 20091113, end: 20091119
  3. DUVADILAN [Concomitant]
     Dosage: 3IUAX PER DAY
     Route: 048
     Dates: start: 20100115, end: 20100115
  4. DUVADILAN [Concomitant]
     Dosage: 3IUAX PER DAY
     Route: 048
     Dates: start: 20100308, end: 20100312
  5. DUVADILAN [Concomitant]
     Dosage: 3IUAX PER DAY
     Route: 048
     Dates: start: 20100316, end: 20100322
  6. ADONA (AC-17) [Concomitant]
     Indication: ABORTION THREATENED
     Dosage: 3IUAX PER DAY
     Route: 048
     Dates: start: 20091113, end: 20091119
  7. PLACODE [Concomitant]
     Indication: INFLUENZA
     Dosage: 9.9ML PER DAY
     Route: 048
     Dates: start: 20091213, end: 20091217
  8. CHINESE MEDICINE [Concomitant]
     Indication: VOMITING
     Dosage: 2IUAX PER DAY
     Route: 048
     Dates: start: 20100115, end: 20100119
  9. CHINESE MEDICINE [Concomitant]
     Dosage: 2IUAX PER DAY
     Route: 048
     Dates: start: 20100308, end: 20100312
  10. BIOFERMIN [Concomitant]
     Indication: VOMITING
     Dosage: 3IUAX PER DAY
     Route: 048
     Dates: start: 20100115, end: 20100119
  11. BIOFERMIN [Concomitant]
     Dosage: 3IUAX PER DAY
     Route: 048
     Dates: start: 20100308, end: 20100312

REACTIONS (3)
  - CLEFT LIP AND PALATE [None]
  - DRUG EXPOSURE DURING PREGNANCY [None]
  - MATERNAL DRUGS AFFECTING FOETUS [None]
